FAERS Safety Report 8528043 (Version 2)
Quarter: 2013Q4

REPORT INFORMATION
  Report Type: Spontaneous
  Country: US (occurrence: US)
  Receive Date: 20120424
  Receipt Date: 20131118
  Transmission Date: 20140711
  Serious: Yes (Hospitalization, Other)
  Sender: FDA-Public Use
  Company Number: US-JNJFOC-20120407579

PATIENT
  Age: 57 Year
  Sex: Female
  Weight: 65.77 kg

DRUGS (12)
  1. DURAGESIC [Suspect]
     Indication: FIBROMYALGIA
     Route: 062
     Dates: start: 20120412
  2. DURAGESIC [Suspect]
     Indication: FIBROMYALGIA
     Route: 062
     Dates: start: 2004
  3. DURAGESIC [Suspect]
     Indication: INTERVERTEBRAL DISC DEGENERATION
     Route: 062
     Dates: start: 2004
  4. DURAGESIC [Suspect]
     Indication: INTERVERTEBRAL DISC DEGENERATION
     Route: 062
     Dates: start: 20120412
  5. FENTANYL TRANDERMAL SYSTEM [Suspect]
     Indication: INTERVERTEBRAL DISC DEGENERATION
     Route: 062
     Dates: end: 201204
  6. FENTANYL TRANDERMAL SYSTEM [Suspect]
     Indication: FIBROMYALGIA
     Route: 062
     Dates: end: 201204
  7. MORPHINE [Suspect]
     Indication: PRODUCT USED FOR UNKNOWN INDICATION
  8. CLONAZEPAM [Suspect]
     Indication: ANXIETY
     Route: 048
     Dates: start: 20110901, end: 201109
  9. VENLAFAXINE HCL [Suspect]
     Indication: ANXIETY
     Route: 048
     Dates: start: 2011, end: 2011
  10. ENDOCET [Concomitant]
     Indication: BREAKTHROUGH PAIN
     Route: 048
  11. SKELAXIN [Concomitant]
     Indication: MUSCLE RELAXANT THERAPY
     Route: 048
  12. DIOVAN [Concomitant]
     Indication: HYPERTENSION
     Route: 048

REACTIONS (7)
  - Large intestinal obstruction [Recovered/Resolved]
  - Thymoma [Recovered/Resolved]
  - Thrombosis [Recovered/Resolved]
  - Drug withdrawal syndrome [Recovered/Resolved]
  - Product physical issue [Unknown]
  - Feeling abnormal [Not Recovered/Not Resolved]
  - Product quality issue [Unknown]
